FAERS Safety Report 6385481-9 (Version None)
Quarter: 2009Q4

REPORT INFORMATION
  Report Type: 
  Country: None (occurrence: None)
  Receive Date: 20091002
  Receipt Date: 20080915
  Transmission Date: 20100525
  Serious: No
  Sender: FDA-Public Use
  Company Number: US-ASTRAZENECA-2008UW19109

PATIENT
  Age: 60 Year
  Sex: Female
  Weight: 87.1 kg

DRUGS (7)
  1. ARIMIDEX [Suspect]
     Indication: BREAST CANCER STAGE III
     Route: 048
     Dates: start: 20051115
  2. SIMVASTATIN [Concomitant]
  3. TRIAMTERENE [Concomitant]
  4. ATENOLOL [Concomitant]
  5. PROZAC [Concomitant]
  6. FAMOTIDINE [Concomitant]
  7. OXYBUTYNIN CHLORIDE [Concomitant]

REACTIONS (3)
  - COUGH [None]
  - DRY EYE [None]
  - MUSCULOSKELETAL STIFFNESS [None]
